FAERS Safety Report 7031687-5 (Version None)
Quarter: 2010Q4

REPORT INFORMATION
  Report Type: 
  Country: None (occurrence: None)
  Receive Date: 20101001
  Receipt Date: 20100920
  Transmission Date: 20110411
  Serious: Yes (Disabling)
  Sender: FDA-Public Use
  Company Number: 015981

PATIENT
  Sex: Male

DRUGS (5)
  1. NEUPRO [Suspect]
     Indication: PARKINSON'S DISEASE
     Dosage: (2 MG TRANSDERMAL), (4 MG TRANSDERMAL), (2 MG TRANSDERMAL)
     Route: 062
     Dates: start: 20100101, end: 20100101
  2. NEUPRO [Suspect]
     Indication: PARKINSON'S DISEASE
     Dosage: (2 MG TRANSDERMAL), (4 MG TRANSDERMAL), (2 MG TRANSDERMAL)
     Route: 062
     Dates: end: 20100101
  3. NEUPRO [Suspect]
     Indication: PARKINSON'S DISEASE
     Dosage: (2 MG TRANSDERMAL), (4 MG TRANSDERMAL), (2 MG TRANSDERMAL)
     Route: 062
     Dates: start: 20070301
  4. MADOPAR /00349201/ [Concomitant]
  5. SINEMET CR [Concomitant]

REACTIONS (3)
  - ABASIA [None]
  - ACTIVITIES OF DAILY LIVING IMPAIRED [None]
  - LETHARGY [None]
